FAERS Safety Report 9263598 (Version 3)
Quarter: 2014Q1

REPORT INFORMATION
  Report Type: Spontaneous
  Country: US (occurrence: US)
  Receive Date: 20130430
  Receipt Date: 20140312
  Transmission Date: 20141002
  Serious: Yes (Hospitalization)
  Sender: FDA-Public Use
  Company Number: US-009507513-1304USA017450

PATIENT
  Sex: Male
  Weight: 84.13 kg

DRUGS (3)
  1. PROPECIA [Suspect]
     Indication: ALOPECIA
     Dosage: 1 MG, QD
     Route: 048
     Dates: start: 2004, end: 201009
  2. LOVASTATIN [Concomitant]
     Indication: HYPERCHOLESTEROLAEMIA
  3. LESCOL [Concomitant]
     Indication: HYPERCHOLESTEROLAEMIA

REACTIONS (30)
  - Nephrolithiasis [Unknown]
  - Weight increased [Unknown]
  - Muscle disorder [Unknown]
  - Blood testosterone decreased [Unknown]
  - Anxiety [Not Recovered/Not Resolved]
  - Blood testosterone increased [Unknown]
  - Erythema [Unknown]
  - Rosacea [Unknown]
  - Telangiectasia [Unknown]
  - Epicondylitis [Unknown]
  - Nephrolithiasis [Unknown]
  - Hypogonadism [Unknown]
  - Myalgia [Unknown]
  - Panic attack [Unknown]
  - Adverse drug reaction [Unknown]
  - Gastrooesophageal reflux disease [Unknown]
  - Asthenia [Unknown]
  - Iliotibial band syndrome [Unknown]
  - Irritable bowel syndrome [Unknown]
  - Osteoarthritis [Unknown]
  - Insomnia [Unknown]
  - Hypertension [Unknown]
  - Vitamin D deficiency [Unknown]
  - Hepatitis [Unknown]
  - Liver function test abnormal [Unknown]
  - Sexual dysfunction [Not Recovered/Not Resolved]
  - Depression [Not Recovered/Not Resolved]
  - Loss of libido [Unknown]
  - Erectile dysfunction [Not Recovered/Not Resolved]
  - Drug ineffective [Unknown]
